FAERS Safety Report 10411797 (Version 1)
Quarter: 2014Q2

REPORT INFORMATION
  Report Type: Spontaneous
  Country: US (occurrence: None)
  Receive Date: 20140604
  Receipt Date: 20140604
  Transmission Date: 20141212
  Serious: No
  Sender: FDA-Public Use
  Company Number: 163-POMAL-14042584

PATIENT
  Age: 62 Year
  Sex: Male
  Weight: 104.33 kg

DRUGS (17)
  1. POMALYST (POMALIDOMIDE) (CAPSULES) [Suspect]
     Indication: PLASMA CELL MYELOMA
     Route: 048
     Dates: start: 201302
  2. ALBUTEROL (SALBUTAMOL) [Concomitant]
  3. ADVAIR DISKUS [Concomitant]
  4. ASPIRINE (ACETYLSALICYLIC ACID) [Concomitant]
  5. FLUTICASONE [Concomitant]
  6. ACYCLOVIR (ACICLOVIR) [Concomitant]
  7. LISINOPRIL [Concomitant]
  8. ATENOLOL [Concomitant]
  9. CYCLOBENZAPRINE [Concomitant]
  10. LORAZEPAM [Concomitant]
  11. VITAMIN B6 (PYRODOXINE HYDROCHLORIDE) [Concomitant]
  12. BACTRIM [Concomitant]
  13. VITAMIN B12 (CYANOCOBALAMIN) [Concomitant]
  14. OXYCODONE [Concomitant]
  15. FOLIC ACID [Concomitant]
  16. IBUPROFEN [Concomitant]
  17. FLUOXETINE [Concomitant]

REACTIONS (1)
  - Wheezing [None]
